FAERS Safety Report 8350998-4 (Version None)
Quarter: 2012Q2

REPORT INFORMATION
  Report Type: 
  Country: None (occurrence: None)
  Receive Date: 20120510
  Receipt Date: 20120503
  Transmission Date: 20120825
  Serious: Yes (Hospitalization, Other)
  Sender: FDA-Public Use
  Company Number: US-BAYER-2011-075371

PATIENT
  Age: 29 Year
  Sex: Female
  Weight: 120.32 kg

DRUGS (14)
  1. HYDROCODONE BITARTRATE [Concomitant]
     Dosage: 5/500 MG
     Route: 048
     Dates: start: 20050610
  2. OXYCODONE HCL [Concomitant]
     Dosage: 5/325 MG
     Route: 048
     Dates: start: 20050615
  3. ACIPHEX [Concomitant]
     Dosage: 20 MG, QD
     Dates: start: 20050624
  4. NAPROXEN SODIUM [Concomitant]
     Dosage: 550 MG, UNK
     Route: 048
     Dates: start: 20040621, end: 20051116
  5. FIORICET [Concomitant]
     Indication: TENSION HEADACHE
     Dosage: UNK
     Route: 048
     Dates: start: 20050427
  6. NORVASC [Concomitant]
     Indication: HYPERTENSION
     Dosage: 5 MG, QD
     Route: 048
     Dates: start: 20040315, end: 20050523
  7. YASMIN [Suspect]
     Indication: CONTRACEPTION
     Dosage: UNK
     Dates: start: 20040630, end: 20070101
  8. YAZ [Suspect]
     Indication: CONTRACEPTION
     Dosage: UNK
     Dates: start: 20080101
  9. PROMETHAZINE [Concomitant]
     Dosage: 25 MG, UNK
     Route: 048
     Dates: start: 20050610
  10. RANITIDINE [Concomitant]
     Dosage: 300 MG, QD
     Route: 048
     Dates: start: 20050523, end: 20070527
  11. LORATADINE [Concomitant]
     Dosage: 10 MG, QD
     Dates: start: 20050524
  12. CIPROFLOXACIN [Concomitant]
     Dosage: 500 MG, UNK
     Route: 048
     Dates: start: 20050618
  13. ALBUTEROL [Concomitant]
     Dosage: UNK
     Dates: start: 20040315, end: 20051024
  14. PULMICORT [Concomitant]

REACTIONS (4)
  - PANCREATITIS [None]
  - PAIN [None]
  - CHOLECYSTITIS CHRONIC [None]
  - CHOLECYSTECTOMY [None]
